FAERS Safety Report 25581711 (Version 1)
Quarter: 2025Q3

REPORT INFORMATION
  Report Type: Spontaneous
  Country: US (occurrence: US)
  Receive Date: 20250719
  Receipt Date: 20250719
  Transmission Date: 20251020
  Serious: No
  Sender: DIFGEN PHARMACEUTICALS LLC
  Company Number: US-Difgen-012097

PATIENT

DRUGS (1)
  1. NICOTINE [Suspect]
     Active Substance: NICOTINE
     Indication: Product used for unknown indication
     Route: 062

REACTIONS (3)
  - Product administered at inappropriate site [Unknown]
  - Paraesthesia [Unknown]
  - Pruritus [Unknown]
